FAERS Safety Report 7211772-5 (Version None)
Quarter: 2011Q1

REPORT INFORMATION
  Report Type: 
  Country: None (occurrence: None)
  Receive Date: 20110105
  Receipt Date: 20101223
  Transmission Date: 20110831
  Serious: Yes (Hospitalization)
  Sender: FDA-Public Use
  Company Number: GB-WATSON-2010-16648

PATIENT
  Age: 30 Year
  Sex: Female

DRUGS (8)
  1. METHADONE [Suspect]
     Indication: PRODUCT USED FOR UNKNOWN INDICATION
     Dosage: A LARGE QUANTITY THE DAY BEFORE
  2. AMPHETAMINE AND DEXTROAMPHETAMINE SALTS [Suspect]
     Indication: DRUG ABUSE
     Dosage: A LARGE QUANTITY THE DAY BEFORE
  3. CANNABIS [Suspect]
     Indication: DRUG ABUSE
     Dosage: UNK
  4. CODEINE [Suspect]
     Indication: PRODUCT USED FOR UNKNOWN INDICATION
     Dosage: UNK
  5. BENZODIAZEPINE DERIVATIVES [Suspect]
     Indication: PRODUCT USED FOR UNKNOWN INDICATION
     Dosage: UNK
  6. CITALOPRAM HYDROBROMIDE [Suspect]
     Indication: PRODUCT USED FOR UNKNOWN INDICATION
     Dosage: A LARGE QUANTITY THE DAY BEFORE
  7. COCAINE [Suspect]
     Indication: DRUG ABUSE
     Dosage: A LARGE QUANTITY THE DAY BEFORE
  8. HEROIN [Suspect]
     Indication: DRUG ABUSE
     Dosage: DAILY FOR 3 YEARS
     Route: 042

REACTIONS (6)
  - LIVER FUNCTION TEST ABNORMAL [None]
  - HYPOKALAEMIA [None]
  - ELECTROCARDIOGRAM QT PROLONGED [None]
  - SYNCOPE [None]
  - ELECTROCARDIOGRAM ST SEGMENT ABNORMAL [None]
  - SOMNOLENCE [None]
